FAERS Safety Report 8965097 (Version 2)
Quarter: 2013Q1

REPORT INFORMATION
  Report Type: Spontaneous
  Country: JP (occurrence: JP)
  Receive Date: 20121213
  Receipt Date: 20130321
  Transmission Date: 20140127
  Serious: Yes (Other)
  Sender: FDA-Public Use
  Company Number: JP-ASTRAZENECA-2012SE92602

PATIENT
  Age: 82 Year
  Sex: Male

DRUGS (5)
  1. SEROQUEL [Suspect]
     Route: 048
  2. SEROQUEL [Suspect]
     Route: 048
     Dates: start: 20121128
  3. DEPAS [Suspect]
     Route: 048
     Dates: start: 20121128
  4. ABILIFY [Concomitant]
  5. ANTIHYPERTENSIVES [Concomitant]

REACTIONS (3)
  - Fall [Unknown]
  - Gait disturbance [Unknown]
  - Intentional drug misuse [Unknown]
